FAERS Safety Report 17960047 (Version 4)
Quarter: 2020Q3

REPORT INFORMATION
  Report Type: Spontaneous
  Country: LT (occurrence: LT)
  Receive Date: 20200630
  Receipt Date: 20200721
  Transmission Date: 20201103
  Serious: Yes (Hospitalization, Other)
  Sender: FDA-Public Use
  Company Number: LT-CELLTRION INC.-2020LT023696

PATIENT

DRUGS (15)
  1. PLAQUENIL [Suspect]
     Active Substance: HYDROXYCHLOROQUINE SULFATE
     Indication: RHEUMATOID ARTHRITIS
     Dosage: 200 MG, EVERY 12 HRS
     Route: 065
  2. METHOTREXATE. [Suspect]
     Active Substance: METHOTREXATE
     Dosage: 15 MG, QW
     Route: 065
  3. INFLIXIMAB (UNKNOWN) [Suspect]
     Active Substance: INFLIXIMAB
     Dosage: 3 MG/KG, TWO COURSES
     Route: 065
     Dates: start: 20200619, end: 20200624
  4. METHOTREXATE. [Suspect]
     Active Substance: METHOTREXATE
     Indication: RHEUMATOID ARTHRITIS
     Dosage: 1/WEEK (DOSE WAS INCREASED TO 15 MG PER WEEK)
     Route: 065
  5. VERAPAMIL?TRANDOLAPRIL [Suspect]
     Active Substance: TRANDOLAPRIL\VERAPAMIL
     Indication: HYPERTENSION
     Dosage: DOSE: 240MG/4MG
     Route: 065
  6. LORNOXICAM [Suspect]
     Active Substance: LORNOXICAM
     Indication: RHEUMATOID ARTHRITIS
     Dosage: 8 MG, EVERY 12 HOURS
     Route: 065
  7. MANNITOL. [Concomitant]
     Active Substance: MANNITOL
     Indication: PRODUCT USED FOR UNKNOWN INDICATION
     Route: 065
  8. CEFTAZIDIME. [Concomitant]
     Active Substance: CEFTAZIDIME
     Indication: IMMUNOSUPPRESSANT DRUG THERAPY
     Route: 042
  9. FOLIC ACID. [Suspect]
     Active Substance: FOLIC ACID
     Indication: RHEUMATOID ARTHRITIS
     Dosage: UNK
     Route: 065
  10. INFLIXIMAB (UNKNOWN) [Suspect]
     Active Substance: INFLIXIMAB
     Dosage: UNK
     Route: 065
  11. LORNOXICAM [Suspect]
     Active Substance: LORNOXICAM
     Dosage: 8 MG, BID
     Route: 065
  12. METHYLPREDNISOLONE. [Suspect]
     Active Substance: METHYLPREDNISOLONE
     Dosage: 12 MG, QD
     Route: 065
  13. PARACETAMOL [Concomitant]
     Active Substance: ACETAMINOPHEN
     Indication: PRODUCT USED FOR UNKNOWN INDICATION
     Route: 065
  14. INFLIXIMAB (UNKNOWN) [Suspect]
     Active Substance: INFLIXIMAB
     Indication: RHEUMATOID ARTHRITIS
     Dosage: TWO COURSES, LAST DOSE WAS INJECTED ONE WEEK EARLIER (ON THE 24TH OF JULY 2019)
  15. METHYLPREDNISOLONE. [Suspect]
     Active Substance: METHYLPREDNISOLONE
     Indication: RHEUMATOID ARTHRITIS
     Dosage: DECREASED DOSE
     Route: 065

REACTIONS (11)
  - Drug ineffective [Unknown]
  - Thrombocytopenia [Unknown]
  - Neurological symptom [Unknown]
  - Drug intolerance [Unknown]
  - Osteoporosis [Unknown]
  - Leukopenia [Unknown]
  - Tick-borne viral encephalitis [Recovering/Resolving]
  - Pancytopenia [Unknown]
  - Transaminases increased [Unknown]
  - Drug-induced liver injury [Unknown]
  - Anaemia [Unknown]

NARRATIVE: CASE EVENT DATE: 20190624
